FAERS Safety Report 26024080 (Version 1)
Quarter: 2025Q4

REPORT INFORMATION
  Report Type: Spontaneous
  Country: US (occurrence: US)
  Receive Date: 20251111
  Receipt Date: 20251111
  Transmission Date: 20260117
  Serious: Yes (Hospitalization, Other)
  Sender: AMGEN
  Company Number: US-AMGEN-USASP2025218850

PATIENT
  Age: 85 Year
  Sex: Male

DRUGS (1)
  1. REPATHA [Suspect]
     Active Substance: EVOLOCUMAB
     Indication: Product used for unknown indication
     Dosage: 140 MILLIGRAM
     Route: 058

REACTIONS (5)
  - Loss of consciousness [Unknown]
  - Confusional state [Unknown]
  - Dementia [Unknown]
  - Gait inability [Recovering/Resolving]
  - Intercepted product storage error [Unknown]

NARRATIVE: CASE EVENT DATE: 20250101
